FAERS Safety Report 9291309 (Version 2)
Quarter: 2013Q2

REPORT INFORMATION
  Report Type: Report from Study
  Country: MX (occurrence: MX)
  Receive Date: 20130515
  Receipt Date: 20130614
  Transmission Date: 20140414
  Serious: Yes (Hospitalization, Disabling, Other)
  Sender: FDA-Public Use
  Company Number: MX-ABBOTT-13P-107-1089283-00

PATIENT
  Age: 56 Year
  Sex: Female

DRUGS (15)
  1. HUMIRA [Suspect]
     Indication: RHEUMATOID ARTHRITIS
     Route: 058
     Dates: start: 20101016, end: 201104
  2. RADISH TEA [Concomitant]
     Indication: SUPPLEMENTATION THERAPY
  3. ENALAPRIL [Concomitant]
     Indication: PULMONARY FIBROSIS
     Dosage: 1/2 TAB
  4. DIBOXINE [Concomitant]
     Indication: PULMONARY FIBROSIS
  5. SALMETEROL [Concomitant]
     Indication: PULMONARY FIBROSIS
     Dosage: 1/ TAB
  6. OMEPRAZOLE [Concomitant]
     Indication: PULMONARY FIBROSIS
     Dates: start: 2010
  7. FOLIC ACID [Concomitant]
     Indication: PULMONARY FIBROSIS
  8. COMBIVENT [Concomitant]
     Indication: PULMONARY FIBROSIS
     Dosage: SHOTS
  9. RISEDRONATO [Concomitant]
     Indication: PULMONARY FIBROSIS
     Dosage: 1/2 TAB
  10. SULINDAC [Concomitant]
     Indication: PULMONARY FIBROSIS
  11. SULINDAC [Concomitant]
     Indication: PULMONARY FIBROSIS
  12. CALCIPROL [Concomitant]
     Indication: PULMONARY FIBROSIS
  13. B COMPLEX [Concomitant]
     Indication: PULMONARY FIBROSIS
  14. SILDENAFIL [Concomitant]
     Indication: PULMONARY FIBROSIS
     Dosage: 1/2 TAB
  15. ALOPURINOL [Concomitant]
     Indication: PULMONARY FIBROSIS

REACTIONS (28)
  - Myalgia [Not Recovered/Not Resolved]
  - Epistaxis [Unknown]
  - Squamous cell carcinoma of skin [Unknown]
  - Oral fungal infection [Unknown]
  - Dry eye [Unknown]
  - Rash macular [Unknown]
  - Mass [Unknown]
  - Congenital joint malformation [Unknown]
  - Lower extremity mass [Unknown]
  - Skin discolouration [Unknown]
  - Anaemia [Unknown]
  - Skin ulcer [Unknown]
  - Vascular rupture [Unknown]
  - Contusion [Unknown]
  - Diarrhoea [Unknown]
  - Headache [Not Recovered/Not Resolved]
  - Cardiac failure [Unknown]
  - Respiratory failure [Unknown]
  - Nausea [Unknown]
  - Dizziness [Unknown]
  - Loose tooth [Unknown]
  - Fatigue [Unknown]
  - Limb deformity [Unknown]
  - Loss of consciousness [Unknown]
  - Headache [Recovered/Resolved]
  - Chest X-ray abnormal [Unknown]
  - Unevaluable event [Unknown]
  - Asthenia [Unknown]
